FAERS Safety Report 9638472 (Version 1)
Quarter: 2013Q4

REPORT INFORMATION
  Report Type: Spontaneous
  Country: US (occurrence: None)
  Receive Date: 20131021
  Receipt Date: 20131021
  Transmission Date: 20140711
  Serious: No
  Sender: FDA-Public Use
  Company Number: None

PATIENT
  Age: 66 Year
  Sex: Male
  Weight: 92.3 kg

DRUGS (1)
  1. METFORMIN [Suspect]
     Indication: DIABETES MELLITUS
     Route: 048
     Dates: start: 20071224, end: 20130528

REACTIONS (2)
  - Diarrhoea [None]
  - Abdominal pain [None]
